FAERS Safety Report 23623975 (Version 1)
Quarter: 2024Q1

REPORT INFORMATION
  Report Type: Spontaneous
  Country: GB (occurrence: GB)
  Receive Date: 20240312
  Receipt Date: 20240312
  Transmission Date: 20240410
  Serious: Yes (Other)
  Sender: FDA-Public Use
  Company Number: None

PATIENT
  Age: 29 Year
  Sex: Female

DRUGS (1)
  1. ARIPIPRAZOLE [Suspect]
     Active Substance: ARIPIPRAZOLE
     Dosage: 400MG; ;
     Route: 065
     Dates: end: 202311

REACTIONS (2)
  - Oculogyric crisis [Not Recovered/Not Resolved]
  - Headache [Not Recovered/Not Resolved]
